FAERS Safety Report 5587542-0 (Version None)
Quarter: 2008Q1

REPORT INFORMATION
  Report Type: 
  Country: None (occurrence: None)
  Receive Date: 20080107
  Receipt Date: 20071225
  Transmission Date: 20080703
  Serious: Yes (Hospitalization)
  Sender: FDA-Public Use
  Company Number: 2007-02451

PATIENT
  Age: 61 Year
  Sex: Female
  Weight: 58 kg

DRUGS (16)
  1. VELCADE [Suspect]
     Indication: MULTIPLE MYELOMA
     Dosage: 2.00 MG, INTRAVENOUS
     Route: 042
     Dates: start: 20070515, end: 20070621
  2. ANTIBIOTICS [Suspect]
     Indication: DRUG USE FOR UNKNOWN INDICATION
  3. PREDNISONE [Suspect]
     Indication: MULTIPLE MYELOMA
     Dosage: 30.00 MG, ORAL, 5.00 MG, ORAL
     Route: 048
     Dates: start: 20070526, end: 20070527
  4. PREDNISONE [Suspect]
     Indication: MULTIPLE MYELOMA
     Dosage: 30.00 MG, ORAL, 5.00 MG, ORAL
     Route: 048
     Dates: start: 20070515, end: 20070621
  5. MAXIPIME [Suspect]
     Indication: PAROTITIS
     Dosage: 1.00 G, INTRAVENOUS, 2.00 G, INTRAVENOUS
     Route: 042
     Dates: start: 20070519, end: 20070519
  6. MAXIPIME [Suspect]
     Indication: PAROTITIS
     Dosage: 1.00 G, INTRAVENOUS, 2.00 G, INTRAVENOUS
     Route: 042
     Dates: start: 20070520, end: 20070520
  7. MAXIPIME [Suspect]
     Indication: PYREXIA
     Dosage: 1.00 G, INTRAVENOUS, 2.00 G, INTRAVENOUS
     Route: 042
     Dates: start: 20070519, end: 20070519
  8. MAXIPIME [Suspect]
     Indication: PYREXIA
     Dosage: 1.00 G, INTRAVENOUS, 2.00 G, INTRAVENOUS
     Route: 042
     Dates: start: 20070520, end: 20070520
  9. SOLDEM [Concomitant]
  10. ZOLPIDEM TARTRATE [Concomitant]
  11. FAMOTIDINE [Concomitant]
  12. CATAPLASMATA [Concomitant]
  13. RINDERON-VG (GENTAMICIN SULFATE, BETAMETHASONE VALERATE) [Concomitant]
  14. REBAMIPIDE (REBAMIPIDE) [Concomitant]
  15. MUCOSTA (REBAMIPIDE) [Concomitant]
  16. CLOBETASOL PROPIONATE [Concomitant]

REACTIONS (12)
  - BACK PAIN [None]
  - BLOOD PRESSURE INCREASED [None]
  - COUGH [None]
  - DIZZINESS [None]
  - DRUG ERUPTION [None]
  - GASTRITIS [None]
  - HYPERTENSION [None]
  - MALAISE [None]
  - NEUTROPHIL COUNT DECREASED [None]
  - PAROTITIS [None]
  - PYREXIA [None]
  - RASH [None]
